FAERS Safety Report 7370113-3 (Version None)
Quarter: 2011Q1

REPORT INFORMATION
  Report Type: 
  Country: None (occurrence: None)
  Receive Date: 20110323
  Receipt Date: 20110310
  Transmission Date: 20110831
  Serious: Yes (Other)
  Sender: FDA-Public Use
  Company Number: PHHY2011BR20043

PATIENT
  Sex: Female
  Weight: 65 kg

DRUGS (3)
  1. GUTALAX [Concomitant]
     Indication: CONSTIPATION
     Dosage: 10 DROPS, EVERY 2 OR 3 DAYS.
     Route: 048
  2. LEPONEX [Suspect]
     Indication: HALLUCINATION
     Dosage: 25 MG, 1 TABLET IN THE MORNING
     Dates: start: 20110309
  3. AKINETON [Concomitant]
     Indication: TREMOR
     Dosage: UNK
     Route: 048
     Dates: start: 20100901

REACTIONS (5)
  - SPEECH DISORDER [None]
  - UNRESPONSIVE TO STIMULI [None]
  - FEELING ABNORMAL [None]
  - SOMNOLENCE [None]
  - TONGUE DISORDER [None]
